FAERS Safety Report 21668021 (Version 1)
Quarter: 2022Q4

REPORT INFORMATION
  Report Type: Spontaneous
  Country: US (occurrence: US)
  Receive Date: 20221201
  Receipt Date: 20221201
  Transmission Date: 20230113
  Serious: Yes (Hospitalization, Other)
  Sender: FDA-Public Use
  Company Number: US-RECORDATI RARE DISEASE INC.-2022006217

PATIENT

DRUGS (8)
  1. OSILODROSTAT [Suspect]
     Active Substance: OSILODROSTAT
     Indication: Pituitary-dependent Cushing^s syndrome
     Dosage: DOSE TITRATED INCREMENTALLY UP TO 15 MG TWICE
  2. OSILODROSTAT [Suspect]
     Active Substance: OSILODROSTAT
     Dosage: 10 MILLIGRAM, BID
  3. OSILODROSTAT [Suspect]
     Active Substance: OSILODROSTAT
     Dosage: 15 MILLIGRAM, BID
  4. OSILODROSTAT [Suspect]
     Active Substance: OSILODROSTAT
     Dosage: 10 MILLIGRAM, BID
  5. KETOCONAZOLE [Concomitant]
     Active Substance: KETOCONAZOLE
     Indication: Hyperadrenocorticism
     Dosage: 2 DOSAGE FORM, BID
  6. KETOCONAZOLE [Concomitant]
     Active Substance: KETOCONAZOLE
     Dosage: 200 MILLIGRAM, BID
  7. CANRENOATE POTASSIUM [Concomitant]
     Active Substance: CANRENOATE POTASSIUM
     Indication: Hypokalaemia
     Dosage: 100 MILLIGRAM, BID
  8. LEVOTHYROXINE [Concomitant]
     Active Substance: LEVOTHYROXINE
     Indication: Hypothyroidism
     Dosage: 112 MICROGRAM, QD

REACTIONS (2)
  - Adrenal insufficiency [Unknown]
  - Incorrect dose administered [Recovered/Resolved]
